FAERS Safety Report 6053479-6 (Version None)
Quarter: 2009Q1

REPORT INFORMATION
  Report Type: 
  Country: None (occurrence: None)
  Receive Date: 20090127
  Receipt Date: 20080616
  Transmission Date: 20090719
  Serious: Yes (Hospitalization, Other)
  Sender: FDA-Public Use
  Company Number: US-TEVA-172103USA

PATIENT
  Age: 56 Year
  Sex: Female

DRUGS (2)
  1. COPAXONE [Suspect]
     Indication: MULTIPLE SCLEROSIS
     Route: 058
     Dates: start: 20050101, end: 20051201
  2. INTERFERON BETA [Suspect]
     Indication: MULTIPLE SCLEROSIS
     Dates: start: 20080108, end: 20080422

REACTIONS (1)
  - BREAST CANCER RECURRENT [None]
